FAERS Safety Report 8444033-7 (Version None)
Quarter: 2012Q2

REPORT INFORMATION
  Report Type: 
  Country: None (occurrence: None)
  Receive Date: 20120618
  Receipt Date: 20120612
  Transmission Date: 20120825
  Serious: Yes (Other)
  Sender: FDA-Public Use
  Company Number: PHEH2012US011905

PATIENT
  Sex: Female

DRUGS (2)
  1. HORMONES [Concomitant]
  2. ZOMETA [Suspect]
     Indication: BREAST CANCER
     Route: 042
     Dates: start: 20010101

REACTIONS (1)
  - SPINAL DISORDER [None]
